FAERS Safety Report 5407166-5 (Version None)
Quarter: 2007Q3

REPORT INFORMATION
  Report Type: 
  Country: None (occurrence: None)
  Receive Date: 20070807
  Receipt Date: 20070801
  Transmission Date: 20080115
  Serious: Yes (Other)
  Sender: FDA-Public Use
  Company Number: DE-MERCK-0612DEU00078

PATIENT
  Age: 81 Year
  Sex: Male

DRUGS (5)
  1. PROSCAR [Suspect]
     Indication: BENIGN PROSTATIC HYPERPLASIA
     Route: 048
     Dates: start: 20040312
  2. ALLOPURINOL [Concomitant]
     Indication: HYPERURICAEMIA
     Route: 048
  3. AMLODIPINE BESYLATE [Concomitant]
     Indication: HYPERTENSION
     Route: 048
  4. GINKGO [Concomitant]
     Indication: CARDIOVASCULAR DISORDER
     Route: 048
     Dates: end: 20060101
  5. HYDROCHLOROTHIAZIDE AND VALSARTAN [Concomitant]
     Indication: HYPERTENSION
     Route: 048

REACTIONS (2)
  - DIZZINESS [None]
  - IDIOPATHIC THROMBOCYTOPENIC PURPURA [None]
